FAERS Safety Report 5813772-6 (Version None)
Quarter: 2008Q3

REPORT INFORMATION
  Report Type: 
  Country: None (occurrence: None)
  Receive Date: 20080717
  Receipt Date: 20080709
  Transmission Date: 20090109
  Serious: Yes (Death, Congenital Anomaly)
  Sender: FDA-Public Use
  Company Number: PHBS2008GB05085

PATIENT
  Sex: Female

DRUGS (7)
  1. GLEEVEC [Suspect]
     Route: 064
  2. COUMADIN [Suspect]
     Route: 064
  3. LORAZEPAM [Concomitant]
     Route: 064
  4. PROCHLORPERAZINE [Concomitant]
     Route: 064
  5. DARVOCET-N 100 [Concomitant]
     Route: 064
  6. LOVENOX [Concomitant]
     Route: 064
  7. LEVAQUIN [Concomitant]
     Route: 064

REACTIONS (9)
  - ABORTION INDUCED [None]
  - COARCTATION OF THE AORTA [None]
  - CONGENITAL NOSE MALFORMATION [None]
  - CONGENITAL PHARYNGEAL ANOMALY [None]
  - DANDY-WALKER SYNDROME [None]
  - DRUG EXPOSURE DURING PREGNANCY [None]
  - FOETAL WARFARIN SYNDROME [None]
  - GASTROSCHISIS [None]
  - VENTRICULAR SEPTAL DEFECT [None]
